FAERS Safety Report 7956379-7 (Version None)
Quarter: 2011Q4

REPORT INFORMATION
  Report Type: 
  Country: None (occurrence: None)
  Receive Date: 20111205
  Receipt Date: 20111201
  Transmission Date: 20120403
  Serious: Yes (Death)
  Sender: FDA-Public Use
  Company Number: NG-PFIZER INC-2011267818

PATIENT
  Age: 39 Year
  Sex: Female

DRUGS (1)
  1. CELEBREX [Suspect]
     Indication: PAIN MANAGEMENT
     Dosage: 200 MG, 2X/DAY
     Route: 048
     Dates: start: 20110514

REACTIONS (2)
  - BRONCHOSPASM [None]
  - ASTHMA [None]
